FAERS Safety Report 20578557 (Version 2)
Quarter: 2022Q1

REPORT INFORMATION
  Report Type: Spontaneous
  Country: DE (occurrence: DE)
  Receive Date: 20220310
  Receipt Date: 20220311
  Transmission Date: 20220423
  Serious: Yes (Life-Threatening, Hospitalization, Other)
  Sender: FDA-Public Use
  Company Number: DE-BoehringerIngelheim-2022-BI-158527

PATIENT
  Age: 84 Year
  Sex: Male

DRUGS (1)
  1. PRAXBIND [Suspect]
     Active Substance: IDARUCIZUMAB
     Indication: Ischaemic stroke

REACTIONS (3)
  - Pulmonary embolism [Recovered/Resolved]
  - Cardiovascular insufficiency [Recovered/Resolved]
  - Tachypnoea [Recovered/Resolved]
